FAERS Safety Report 18936350 (Version 1)
Quarter: 2021Q1

REPORT INFORMATION
  Report Type: Spontaneous
  Country: US (occurrence: US)
  Receive Date: 20210224
  Receipt Date: 20210224
  Transmission Date: 20210420
  Serious: No
  Sender: FDA-Public Use
  Company Number: US-PFIZER INC-2021133618

PATIENT
  Age: 77 Year
  Sex: Female

DRUGS (2)
  1. TOZINAMERAN. [Suspect]
     Active Substance: TOZINAMERAN
     Indication: COVID-19 IMMUNISATION
     Dosage: SINGLE DOSE
  2. IBRANCE [Suspect]
     Active Substance: PALBOCICLIB
     Dosage: 125 MG, CYCLIC
     Dates: start: 20210106

REACTIONS (3)
  - White blood cell count decreased [Unknown]
  - Fatigue [Unknown]
  - Anxiety [Unknown]

NARRATIVE: CASE EVENT DATE: 202101
